FAERS Safety Report 7591171-7 (Version None)
Quarter: 2011Q3

REPORT INFORMATION
  Report Type: 
  Country: None (occurrence: None)
  Receive Date: 20110705
  Receipt Date: 20110630
  Transmission Date: 20111222
  Serious: Yes (Death, Hospitalization)
  Sender: FDA-Public Use
  Company Number: US-ASTRAZENECA-2011SE39616

PATIENT
  Age: 83 Year
  Sex: Male
  Weight: 63.5 kg

DRUGS (1)
  1. SEROQUEL [Suspect]
     Indication: AGGRESSION
     Route: 048
     Dates: start: 20110201

REACTIONS (6)
  - MENTAL DISORDER [None]
  - DEATH [None]
  - DYSARTHRIA [None]
  - OFF LABEL USE [None]
  - MASKED FACIES [None]
  - OEDEMA PERIPHERAL [None]
